FAERS Safety Report 5658992-9 (Version None)
Quarter: 2008Q1

REPORT INFORMATION
  Report Type: 
  Country: None (occurrence: None)
  Receive Date: 20080310
  Receipt Date: 20071003
  Transmission Date: 20080703
  Serious: No
  Sender: FDA-Public Use
  Company Number: US-BAYER-200711600BCC

PATIENT
  Age: 20 Year
  Sex: Female
  Weight: 57 kg

DRUGS (2)
  1. ALEVE [Suspect]
     Indication: SELF-INJURIOUS IDEATION
     Route: 048
     Dates: start: 20070519
  2. IBUPROFEN [Suspect]
     Indication: SELF-INJURIOUS IDEATION
     Dates: start: 20070519

REACTIONS (2)
  - DRUG SCREEN POSITIVE [None]
  - TOXICOLOGIC TEST ABNORMAL [None]
